FAERS Safety Report 9174819 (Version 2)
Quarter: 2013Q2

REPORT INFORMATION
  Report Type: Spontaneous
  Country: FR (occurrence: FR)
  Receive Date: 20130320
  Receipt Date: 20130405
  Transmission Date: 20140414
  Serious: Yes (Hospitalization)
  Sender: FDA-Public Use
  Company Number: FR-ASTRAZENECA-2013SE17643

PATIENT
  Age: 84 Year
  Sex: Female

DRUGS (10)
  1. CRESTOR [Suspect]
     Route: 048
  2. LAMOTRIGINE [Suspect]
     Indication: FACIAL NEURALGIA
     Route: 048
     Dates: start: 20130201, end: 20130210
  3. CLOPIDOGREL [Concomitant]
  4. TAREG [Concomitant]
  5. ACEBUTOLOL [Concomitant]
  6. SEROPLEX [Concomitant]
  7. ALPRAZOLAM [Concomitant]
  8. GABAPENTINE [Concomitant]
  9. IMODIUM [Concomitant]
  10. DAFALGAN CODEINE [Concomitant]

REACTIONS (3)
  - Encephalopathy [Recovered/Resolved]
  - Dyskinesia [Recovered/Resolved]
  - Blood creatinine increased [Unknown]
